FAERS Safety Report 9412154 (Version 1)
Quarter: 2013Q3

REPORT INFORMATION
  Report Type: Spontaneous
  Country: DK (occurrence: DK)
  Receive Date: 20130722
  Receipt Date: 20130722
  Transmission Date: 20140515
  Serious: Yes (Other)
  Sender: FDA-Public Use
  Company Number: DK-NOVOPROD-382400

PATIENT
  Age: 59 Year
  Sex: Male

DRUGS (4)
  1. VICTOZA [Suspect]
     Indication: TYPE 2 DIABETES MELLITUS
  2. FORXIGA [Suspect]
     Indication: TYPE 2 DIABETES MELLITUS
     Dates: start: 201201
  3. METFORMIN [Suspect]
     Indication: TYPE 2 DIABETES MELLITUS
     Dosage: UNK
  4. METFORMIN [Suspect]
     Dosage: UNK

REACTIONS (3)
  - Depression [Unknown]
  - Fatigue [Unknown]
  - Weight decreased [Unknown]
